FAERS Safety Report 9224255 (Version 1)
Quarter: 2013Q1

REPORT INFORMATION
  Report Type: Spontaneous
  Country: CA (occurrence: None)
  Receive Date: 20120914
  Receipt Date: 20120914
  Transmission Date: 20140127
  Serious: Yes (Other)
  Sender: FDA-Public Use
  Company Number: JPI-P-016667

PATIENT
  Age: 18 Year
  Sex: Male

DRUGS (1)
  1. XYREM ?(500 MILLIGRAM/MILLILITERS, SOLUTION)(SODIUM OXYBATE) [Suspect]
     Indication: CATAPLEXY
     Route: 048
     Dates: start: 20080717, end: 20080819

REACTIONS (4)
  - Bradycardia [None]
  - Overdose [None]
  - Somnolence [None]
  - Gait disturbance [None]
